FAERS Safety Report 4416181-X (Version None)
Quarter: 2004Q2

REPORT INFORMATION
  Report Type: 
  Country: None (occurrence: None)
  Receive Date: 20040623
  Receipt Date: 20040412
  Transmission Date: 20050107
  Serious: Yes (Hospitalization, Other)
  Sender: FDA-Public Use
  Company Number: WAES 0404USA01226

PATIENT
  Age: 61 Year
  Sex: Female

DRUGS (7)
  1. INVANZ [Suspect]
     Indication: ABSCESS
     Dosage: 1 GM/DAILY/IV
     Route: 042
     Dates: start: 20040325, end: 20040325
  2. INVANZ [Suspect]
     Indication: APPENDICITIS
     Dosage: 1 GM/DAILY/IV
     Route: 042
     Dates: start: 20040325, end: 20040325
  3. COUMADIN [Concomitant]
  4. DILANTIN [Concomitant]
  5. LASIX [Concomitant]
  6. ATENOLOL [Concomitant]
  7. PHENOBARBITAL TAB [Concomitant]

REACTIONS (1)
  - RASH PRURITIC [None]
